FAERS Safety Report 23958186 (Version 2)
Quarter: 2024Q2

REPORT INFORMATION
  Report Type: Spontaneous
  Country: JP (occurrence: JP)
  Receive Date: 20240610
  Receipt Date: 20240618
  Transmission Date: 20240716
  Serious: Yes (Other)
  Sender: FDA-Public Use
  Company Number: JP-TEVA-VS-3208261

PATIENT
  Age: 41 Year
  Sex: Female

DRUGS (1)
  1. CERCINE [Suspect]
     Active Substance: DIAZEPAM
     Indication: Product used for unknown indication
     Dosage: DOSAGE IS UNKNOWN, INJECTION 10MG
     Route: 065
     Dates: start: 20240518, end: 20240518

REACTIONS (2)
  - Vasculitis [Unknown]
  - Vascular pain [Unknown]

NARRATIVE: CASE EVENT DATE: 20240518
